FAERS Safety Report 24531395 (Version 1)
Quarter: 2024Q4

REPORT INFORMATION
  Report Type: Report from Study
  Country: US (occurrence: US)
  Receive Date: 20241022
  Receipt Date: 20241022
  Transmission Date: 20250114
  Serious: No
  Sender: ROCHE
  Company Number: US-ROCHE-3487143

PATIENT
  Age: 70 Year
  Sex: Female

DRUGS (4)
  1. PULMOZYME [Suspect]
     Active Substance: DORNASE ALFA
     Indication: Cystic fibrosis
     Dosage: NEBULIZE THE CONTENTS OF 1 VIAL(S) TWICE A DAY
     Route: 055
  2. PULMOZYME [Suspect]
     Active Substance: DORNASE ALFA
     Indication: Cystic fibrosis lung
     Dosage: NEBULIZE THE CONTENTS OF 1 VIAL(S) 2.5MG TWICE A DAY
     Route: 055
  3. PULMOZYME [Suspect]
     Active Substance: DORNASE ALFA
     Dosage: NEBULIZE THE CONTENTS OF 1 VIAL(S) TWICE A DAY
     Route: 055
  4. PULMOZYME [Suspect]
     Active Substance: DORNASE ALFA
     Dosage: 2.5 MG/2.5 ML : INHALE 1 VIAL BID
     Route: 055

REACTIONS (2)
  - Memory impairment [Unknown]
  - Amnesia [Unknown]
